FAERS Safety Report 20455815 (Version 7)
Quarter: 2022Q4

REPORT INFORMATION
  Report Type: Other
  Country: CA (occurrence: CA)
  Receive Date: 20220210
  Receipt Date: 20221201
  Transmission Date: 20230113
  Serious: Yes (Death, Other)
  Sender: FDA-Public Use
  Company Number: CA-002147023-NVSC2022CA022269

PATIENT
  Sex: Male

DRUGS (13)
  1. RANIBIZUMAB [Suspect]
     Active Substance: RANIBIZUMAB
     Indication: Neovascular age-related macular degeneration
     Dosage: 0.5 MG LEFT EYE PREFILLED SYRINGE
     Route: 065
     Dates: start: 20210510
  2. RANIBIZUMAB [Suspect]
     Active Substance: RANIBIZUMAB
     Route: 065
     Dates: start: 20210607
  3. RANIBIZUMAB [Suspect]
     Active Substance: RANIBIZUMAB
     Dosage: 0.5 MG LEFT EYE PREFILLED SYRINGE
     Route: 065
     Dates: start: 20210705
  4. RANIBIZUMAB [Suspect]
     Active Substance: RANIBIZUMAB
     Dosage: 0.5 MG LEFT EYE PREFILLED SYRINGE
     Route: 065
     Dates: start: 20210830
  5. RANIBIZUMAB [Suspect]
     Active Substance: RANIBIZUMAB
     Dosage: 0.5 MG LEFT EYE PREFILLED SYRINGE
     Route: 065
     Dates: start: 20210927
  6. RANIBIZUMAB [Suspect]
     Active Substance: RANIBIZUMAB
     Dosage: 0.5 MG LEFT EYE PREFILLED SYRINGE
     Route: 050
     Dates: start: 20211108, end: 20211206
  7. RANIBIZUMAB [Suspect]
     Active Substance: RANIBIZUMAB
     Dosage: 0.5 MG LEFT EYE PREFILLED SYRINGE
     Route: 065
     Dates: start: 20210802
  8. AFLIBERCEPT [Concomitant]
     Active Substance: AFLIBERCEPT
     Indication: Neovascular age-related macular degeneration
     Dosage: 2 MG, LEFT EYE PREFILLED SYRINGE
     Route: 065
     Dates: start: 20211206
  9. AFLIBERCEPT [Concomitant]
     Active Substance: AFLIBERCEPT
     Dosage: 2 MG, LEFT EYE PREFILLED SYRINGE
     Route: 065
     Dates: start: 20220103
  10. AFLIBERCEPT [Concomitant]
     Active Substance: AFLIBERCEPT
     Dosage: 2 MG, LEFT EYE PREFILLED SYRINGE
     Route: 065
     Dates: start: 20220131
  11. AFLIBERCEPT [Concomitant]
     Active Substance: AFLIBERCEPT
     Dosage: 2 MG, LEFT EYE PREFILLED SYRINGE
     Route: 065
     Dates: start: 20220228
  12. AFLIBERCEPT [Concomitant]
     Active Substance: AFLIBERCEPT
     Dosage: 2 MG, LEFT EYE PREFILLED SYRINGE
     Route: 065
     Dates: start: 20220328
  13. AFLIBERCEPT [Concomitant]
     Active Substance: AFLIBERCEPT
     Dosage: 2 MG, LEFT EYE PREFILLED SYRINGE
     Route: 065
     Dates: start: 20220425

REACTIONS (3)
  - Death [Fatal]
  - Retinal oedema [Unknown]
  - Drug ineffective [Unknown]

NARRATIVE: CASE EVENT DATE: 20211206
